FAERS Safety Report 16277907 (Version 1)
Quarter: 2019Q2

REPORT INFORMATION
  Report Type: Spontaneous
  Country: US (occurrence: US)
  Receive Date: 20190506
  Receipt Date: 20190506
  Transmission Date: 20190711
  Serious: Yes (Other)
  Sender: FDA-Public Use
  Company Number: US-ASTRAZENECA-2019SE11052

PATIENT
  Age: 14765 Day
  Sex: Female

DRUGS (4)
  1. PRILOSEC [Suspect]
     Active Substance: OMEPRAZOLE MAGNESIUM
     Route: 065
     Dates: start: 20120315, end: 20170312
  2. NORVASC [Concomitant]
     Active Substance: AMLODIPINE BESYLATE
  3. TUMS [Concomitant]
     Active Substance: CALCIUM CARBONATE
  4. COREG [Concomitant]
     Active Substance: CARVEDILOL

REACTIONS (5)
  - Renal failure [Unknown]
  - Chronic kidney disease [Unknown]
  - End stage renal disease [Unknown]
  - Rebound acid hypersecretion [Unknown]
  - Renal injury [Unknown]

NARRATIVE: CASE EVENT DATE: 20130306
